FAERS Safety Report 6172998-5 (Version None)
Quarter: 2009Q2

REPORT INFORMATION
  Report Type: 
  Country: None (occurrence: None)
  Receive Date: 20090430
  Receipt Date: 20090330
  Transmission Date: 20091009
  Serious: No
  Sender: FDA-Public Use
  Company Number: US-BAYER-200911019BCC

PATIENT
  Age: 82 Year
  Sex: Female
  Weight: 53 kg

DRUGS (6)
  1. ALEVE [Suspect]
     Indication: ARTHRITIS
     Dosage: TOTAL DAILY DOSE: 880 MG  UNIT DOSE: 220 MG
     Route: 048
     Dates: start: 20090301, end: 20090328
  2. ALEVE [Suspect]
     Dosage: TOTAL DAILY DOSE: 440 MG  UNIT DOSE: 220 MG
     Route: 048
     Dates: start: 20090329, end: 20090329
  3. TOPROL-XL [Concomitant]
     Indication: DRUG USE FOR UNKNOWN INDICATION
  4. OAD VITAMIN [Concomitant]
     Indication: DRUG USE FOR UNKNOWN INDICATION
  5. CITRACAL +D [Concomitant]
     Indication: DRUG USE FOR UNKNOWN INDICATION
  6. FOSAMAX [Concomitant]
     Indication: DRUG USE FOR UNKNOWN INDICATION

REACTIONS (1)
  - DIZZINESS [None]
